FAERS Safety Report 18377606 (Version 1)
Quarter: 2020Q4

REPORT INFORMATION
  Report Type: Spontaneous
  Country: CA (occurrence: CA)
  Receive Date: 20201013
  Receipt Date: 20201013
  Transmission Date: 20210114
  Serious: Yes (Hospitalization)
  Sender: FDA-Public Use
  Company Number: CA-JNJFOC-20201012822

PATIENT
  Age: 83 Year
  Sex: Male
  Weight: 69 kg

DRUGS (13)
  1. ASPRIN [Suspect]
     Active Substance: ASPIRIN
     Route: 065
  2. MACROGOL [Concomitant]
     Active Substance: POLYETHYLENE GLYCOLS
     Route: 048
  3. PREDNISONE. [Concomitant]
     Active Substance: PREDNISONE
     Route: 065
  4. LYRICA [Concomitant]
     Active Substance: PREGABALIN
     Route: 065
  5. ZYTIGA [Suspect]
     Active Substance: ABIRATERONE ACETATE
     Indication: PROSTATE CANCER
     Route: 048
  6. TRELSTAR [Concomitant]
     Active Substance: TRIPTORELIN PAMOATE
     Route: 065
  7. LIDOCAINE. [Concomitant]
     Active Substance: LIDOCAINE
     Route: 061
  8. DEXILANT [Concomitant]
     Active Substance: DEXLANSOPRAZOLE
     Dosage: DELAYED RELEASE
     Route: 065
  9. DENOSUMAB [Concomitant]
     Active Substance: DENOSUMAB
     Route: 058
  10. LEKOVIT CA [Concomitant]
     Active Substance: CALCIUM CARBONATE\CHOLECALCIFEROL
     Route: 048
  11. MORPHINE [Concomitant]
     Active Substance: MORPHINE
     Route: 065
  12. METOPROLOL. [Concomitant]
     Active Substance: METOPROLOL
     Route: 065
  13. KETAMINE [Concomitant]
     Active Substance: KETAMINE
     Route: 065

REACTIONS (1)
  - Immune-mediated myositis [Recovered/Resolved]
